FAERS Safety Report 10182800 (Version 3)
Quarter: 2014Q2

REPORT INFORMATION
  Report Type: Spontaneous
  Country: JP (occurrence: JP)
  Receive Date: 20140520
  Receipt Date: 20140612
  Transmission Date: 20141212
  Serious: Yes (Other)
  Sender: FDA-Public Use
  Company Number: JP-B.I. PHARMACEUTICALS,INC./RIDGEFIELD-2014-BI-21709NB

PATIENT
  Age: 74 Year
  Sex: Female
  Weight: 65 kg

DRUGS (8)
  1. PRAZAXA [Suspect]
     Indication: ATRIAL FIBRILLATION
     Dosage: 300 MG
     Route: 048
     Dates: start: 20111025, end: 20140430
  2. DILTIAZEM HYDROCHLORIDE [Concomitant]
     Indication: ANGINA PECTORIS
     Dosage: 200 MG
     Route: 048
     Dates: start: 20070120
  3. MECOBALAMIN [Concomitant]
     Indication: SCIATICA
     Dosage: 1500 MG
     Route: 048
     Dates: start: 20100208
  4. PHENLASE [Concomitant]
     Indication: PANCREATITIS CHRONIC
     Dosage: 3 ANZ
     Route: 048
     Dates: start: 20080723
  5. BERIZYM [Concomitant]
     Indication: PANCREATITIS CHRONIC
     Dosage: 3 G
     Route: 048
     Dates: start: 20080723
  6. ADETPHOS [Concomitant]
     Indication: DIZZINESS POSTURAL
     Dosage: 3 G
     Route: 048
     Dates: start: 20091105
  7. LIVALO [Concomitant]
     Indication: DYSLIPIDAEMIA
     Dosage: 2 MG
     Route: 048
     Dates: start: 20121002
  8. PARIET [Concomitant]
     Indication: GASTROOESOPHAGEAL REFLUX DISEASE
     Dosage: 10 MG
     Route: 048
     Dates: start: 20130404

REACTIONS (4)
  - Interstitial lung disease [Recovered/Resolved]
  - Dysgeusia [Recovered/Resolved]
  - Oral herpes [Recovered/Resolved]
  - Haemoptysis [Recovered/Resolved]
